FAERS Safety Report 5736083-6 (Version None)
Quarter: 2008Q2

REPORT INFORMATION
  Report Type: 
  Country: None (occurrence: None)
  Receive Date: 20080509
  Receipt Date: 20080425
  Transmission Date: 20081010
  Serious: Yes (Hospitalization)
  Sender: FDA-Public Use
  Company Number: 002#2#2008-00314

PATIENT
  Age: 75 Year
  Sex: Male
  Weight: 63.5036 kg

DRUGS (2)
  1. NEUPRO [Suspect]
     Dosage: 2MG/24H, 1 IN 1 D, TRANSDERMAL
     Route: 062
     Dates: start: 20070901, end: 20071216
  2. REQUIP [Concomitant]

REACTIONS (2)
  - CEREBROVASCULAR ACCIDENT [None]
  - WRONG TECHNIQUE IN DRUG USAGE PROCESS [None]
